FAERS Safety Report 11102507 (Version 2)
Quarter: 2015Q3

REPORT INFORMATION
  Report Type: Spontaneous
  Country: GB (occurrence: GB)
  Receive Date: 20150511
  Receipt Date: 20150707
  Transmission Date: 20151125
  Serious: Yes (Hospitalization, Disabling)
  Sender: FDA-Public Use
  Company Number: GB-ROCHE-1575419

PATIENT
  Age: 14 Year
  Sex: Female
  Weight: 55.4 kg

DRUGS (6)
  1. SERENACE [Concomitant]
     Active Substance: HALOPERIDOL
     Route: 065
     Dates: start: 201406
  2. CETRIZINE [Concomitant]
     Active Substance: CETIRIZINE HYDROCHLORIDE
     Route: 065
     Dates: start: 201409
  3. FLIXONASE [Concomitant]
     Active Substance: FLUTICASONE PROPIONATE
     Route: 065
     Dates: start: 201406
  4. MONTELUKAST [Concomitant]
     Active Substance: MONTELUKAST SODIUM
     Route: 065
     Dates: start: 201406
  5. XOLAIR [Suspect]
     Active Substance: OMALIZUMAB
     Indication: PRODUCT USED FOR UNKNOWN INDICATION
     Route: 058
     Dates: start: 20140918
  6. THEOPHYLLINE [Concomitant]
     Active Substance: THEOPHYLLINE ANHYDROUS
     Route: 065
     Dates: start: 201406

REACTIONS (5)
  - Arthralgia [Recovered/Resolved]
  - Synovial disorder [Unknown]
  - Cold urticaria [Not Recovered/Not Resolved]
  - Local reaction [Recovered/Resolved]
  - Joint swelling [Recovered/Resolved with Sequelae]

NARRATIVE: CASE EVENT DATE: 20140918
